FAERS Safety Report 9497666 (Version 1)
Quarter: 2013Q3

REPORT INFORMATION
  Report Type: Spontaneous
  Country: US (occurrence: US)
  Receive Date: 20130904
  Receipt Date: 20130904
  Transmission Date: 20140515
  Serious: No
  Sender: FDA-Public Use
  Company Number: US-AMGEN-USASP2013061394

PATIENT
  Age: 28 Year
  Sex: Male

DRUGS (1)
  1. ENBREL [Suspect]
     Indication: POLYARTHRITIS
     Dosage: 50 MG, QWK
     Route: 065
     Dates: start: 201303

REACTIONS (4)
  - Selective IgA immunodeficiency [Unknown]
  - B-lymphocyte count decreased [Unknown]
  - Natural killer cell count decreased [Unknown]
  - Pain [Unknown]
